FAERS Safety Report 7023825-5 (Version None)
Quarter: 2010Q4

REPORT INFORMATION
  Report Type: 
  Country: None (occurrence: None)
  Receive Date: 20101001
  Receipt Date: 20100921
  Transmission Date: 20110411
  Serious: Yes (Death, Other)
  Sender: FDA-Public Use
  Company Number: BG-BAYER-201040241GPV

PATIENT
  Age: 23 Year
  Sex: Female

DRUGS (5)
  1. SORAFENIB [Suspect]
     Indication: THYROID CANCER METASTATIC
     Dosage: UNIT DOSE: 400 MG
     Route: 042
     Dates: start: 20090624
  2. SORAFENIB [Suspect]
     Dosage: UNIT DOSE: 400 MG
     Route: 042
     Dates: start: 20090501
  3. ZOMETA [Suspect]
     Indication: THYROID CANCER METASTATIC
     Dosage: EVERY 28 DAYS
     Route: 042
     Dates: start: 20090501
  4. LEVOTHYROXINE SODIUM [Concomitant]
     Indication: HYPOTHYROIDISM
     Dosage: DOSAGE INCREASED
  5. LEVOTHYROXINE SODIUM [Concomitant]

REACTIONS (10)
  - ARTHRALGIA [None]
  - CHEST PAIN [None]
  - DEATH [None]
  - DECREASED APPETITE [None]
  - DYSPNOEA [None]
  - EXFOLIATIVE RASH [None]
  - FATIGUE [None]
  - MYALGIA [None]
  - PALMAR-PLANTAR ERYTHRODYSAESTHESIA SYNDROME [None]
  - SKIN EXFOLIATION [None]
